FAERS Safety Report 5828807-4 (Version None)
Quarter: 2008Q3

REPORT INFORMATION
  Report Type: 
  Country: None (occurrence: None)
  Receive Date: 20080731
  Receipt Date: 20080730
  Transmission Date: 20090109
  Serious: Yes (Other)
  Sender: FDA-Public Use
  Company Number: A0684586A

PATIENT
  Age: 52 Year
  Sex: Female
  Weight: 65.9 kg

DRUGS (1)
  1. ALLI [Suspect]
     Indication: WEIGHT LOSS DIET
     Route: 048
     Dates: start: 20070718

REACTIONS (32)
  - ANOREXIA [None]
  - ARTHRALGIA [None]
  - ARTHROPATHY [None]
  - BENIGN NEOPLASM [None]
  - BRONCHITIS [None]
  - CELLULITIS [None]
  - CONSTIPATION [None]
  - DEFAECATION URGENCY [None]
  - DEPRESSION [None]
  - DRUG INEFFECTIVE [None]
  - DYSPNOEA [None]
  - EMOTIONAL DISORDER [None]
  - ENERGY INCREASED [None]
  - FLATULENCE [None]
  - FLUID RETENTION [None]
  - FOOD CRAVING [None]
  - FREQUENT BOWEL MOVEMENTS [None]
  - HUNGER [None]
  - HYPERPHAGIA [None]
  - HYPERTENSION [None]
  - INFECTED CYST [None]
  - MALAISE [None]
  - MENSTRUATION DELAYED [None]
  - NASOPHARYNGITIS [None]
  - NAUSEA [None]
  - PAIN [None]
  - PYREXIA [None]
  - STEATORRHOEA [None]
  - SUBCUTANEOUS ABSCESS [None]
  - THERAPEUTIC RESPONSE UNEXPECTED [None]
  - WEIGHT FLUCTUATION [None]
  - WEIGHT INCREASED [None]
